FAERS Safety Report 24090683 (Version 1)
Quarter: 2024Q3

REPORT INFORMATION
  Report Type: Spontaneous
  Country: CA (occurrence: None)
  Receive Date: 20240715
  Receipt Date: 20240715
  Transmission Date: 20241016
  Serious: Yes (Other)
  Sender: ORION
  Company Number: CA-PFIZER INC-202400104622

PATIENT
  Age: 56 Year
  Sex: Male

DRUGS (4)
  1. METHOTREXATE [Suspect]
     Active Substance: METHOTREXATE
     Indication: Product used for unknown indication
     Dates: start: 20230510, end: 20240424
  2. METHOTREXATE [Suspect]
     Active Substance: METHOTREXATE
  3. INFLECTRA [Concomitant]
     Active Substance: INFLIXIMAB-DYYB
     Indication: Ankylosing spondylitis
     Dosage: W 0, 2, 6 WEEKS THEN EVERY 8 WEEKS
     Dates: start: 20240529
  4. INFLECTRA [Concomitant]
     Active Substance: INFLIXIMAB-DYYB
     Dosage: W 0, 2, 6 WEEKS THEN EVERY 8 WEEKS, ONGOING
     Dates: start: 20240610

REACTIONS (4)
  - Drug ineffective [Unknown]
  - Thyroid hormones decreased [Unknown]
  - Blood testosterone decreased [Unknown]
  - Pneumonia [Unknown]

NARRATIVE: CASE EVENT DATE: 20240101
